FAERS Safety Report 17646705 (Version 1)
Quarter: 2020Q2

REPORT INFORMATION
  Report Type: Report from Study
  Country: DO (occurrence: DO)
  Receive Date: 20200408
  Receipt Date: 20200408
  Transmission Date: 20200713
  Serious: Yes (Other)
  Sender: FDA-Public Use
  Company Number: NVSC2020DO095001

PATIENT
  Age: 88 Year
  Sex: Female

DRUGS (2)
  1. CODIOVAN [Suspect]
     Active Substance: HYDROCHLOROTHIAZIDE\VALSARTAN
     Indication: PRODUCT USED FOR UNKNOWN INDICATION
     Dosage: 0.5 DF, QD
     Route: 065
     Dates: end: 201912
  2. CODIOVAN [Suspect]
     Active Substance: HYDROCHLOROTHIAZIDE\VALSARTAN
     Dosage: 1 DF, QD
     Route: 065

REACTIONS (4)
  - Wrong technique in product usage process [Unknown]
  - Blood pressure increased [Unknown]
  - Anxiety [Unknown]
  - Neoplasm malignant [Unknown]
